FAERS Safety Report 9068649 (Version 2)
Quarter: 2013Q1

REPORT INFORMATION
  Report Type: Spontaneous
  Country: JP (occurrence: JP)
  Receive Date: 20130131
  Receipt Date: 20130131
  Transmission Date: 20140127
  Serious: Yes (Death, Hospitalization, Other)
  Sender: FDA-Public Use
  Company Number: JP-PFIZER INC-2012309795

PATIENT
  Age: 79 Year
  Sex: Female
  Weight: 60 kg

DRUGS (5)
  1. CELECOX [Suspect]
     Indication: PAIN MANAGEMENT
     Dosage: 100 MG, 2X/DAY
     Route: 048
     Dates: start: 20121021, end: 20121121
  2. VOLTAREN [Suspect]
     Indication: PAIN MANAGEMENT
     Dosage: AS NEEDED (0 TO 2 TIMES DAILY AND 8 TIMES IN TOTAL DURING THE ADMINISTRATION)
     Route: 054
     Dates: start: 20121021, end: 20121121
  3. TRAMACET [Suspect]
     Indication: PAIN MANAGEMENT
     Dosage: 1 DF, 2X/DAY
     Route: 048
     Dates: start: 20121021, end: 20121121
  4. PRIMPERAN [Concomitant]
     Dosage: UNK
     Dates: start: 20121021, end: 20121121
  5. LYRICA [Concomitant]
     Dosage: UNK
     Dates: start: 20121027, end: 20121121

REACTIONS (3)
  - Gastric ulcer perforation [Fatal]
  - Hepatic failure [Fatal]
  - Peritonitis [Fatal]
